FAERS Safety Report 13582718 (Version 1)
Quarter: 2017Q2

REPORT INFORMATION
  Report Type: Spontaneous
  Country: US (occurrence: PR)
  Receive Date: 20170525
  Receipt Date: 20170525
  Transmission Date: 20170830
  Serious: Yes (Hospitalization, Other)
  Sender: FDA-Public Use
  Company Number: PR-TEVA-772447USA

PATIENT
  Sex: Male

DRUGS (1)
  1. COPAXONE [Suspect]
     Active Substance: GLATIRAMER ACETATE
     Dosage: UNKNOWN FOR STRENGTH

REACTIONS (4)
  - Multiple sclerosis plaque [Unknown]
  - Mobility decreased [Unknown]
  - Blindness unilateral [Unknown]
  - Asthenia [Unknown]
